FAERS Safety Report 5997894-5 (Version None)
Quarter: 2008Q4

REPORT INFORMATION
  Report Type: 
  Country: None (occurrence: None)
  Receive Date: 20081212
  Receipt Date: 20081125
  Transmission Date: 20090506
  Serious: No
  Sender: FDA-Public Use
  Company Number: US-ABBOTT-08P-163-0489864-00

PATIENT
  Sex: Female
  Weight: 145.28 kg

DRUGS (1)
  1. HUMIRA [Suspect]
     Indication: CROHN'S DISEASE
     Route: 058
     Dates: start: 20081104

REACTIONS (7)
  - COUGH [None]
  - DYSPNOEA [None]
  - FATIGUE [None]
  - FLUID RETENTION [None]
  - ORAL CANDIDIASIS [None]
  - RESPIRATORY TRACT CONGESTION [None]
  - WEIGHT INCREASED [None]
